FAERS Safety Report 7126136-2 (Version None)
Quarter: 2010Q4

REPORT INFORMATION
  Report Type: 
  Country: None (occurrence: None)
  Receive Date: 20101129
  Receipt Date: 20101116
  Transmission Date: 20110411
  Serious: Yes (Disabling)
  Sender: FDA-Public Use
  Company Number: GB-JNJFOC-20101107240

PATIENT
  Age: 36 Year
  Sex: Male

DRUGS (7)
  1. TRAMADOL HYDROCHLORIDE [Suspect]
     Indication: ILL-DEFINED DISORDER
     Route: 065
  2. DULOXETINE HYDROCHLORIDE [Interacting]
     Indication: TRIGEMINAL NEURALGIA
     Route: 048
  3. DULOXETINE HYDROCHLORIDE [Interacting]
     Indication: DEPRESSION
     Route: 048
  4. AMITRIPTYLINE [Concomitant]
  5. CELECOXIB [Concomitant]
  6. INSULIN [Concomitant]
  7. SIMVASTATIN [Concomitant]

REACTIONS (3)
  - BLADDER OBSTRUCTION [None]
  - DRUG INTERACTION [None]
  - SEROTONIN SYNDROME [None]
